FAERS Safety Report 5625739-1 (Version None)
Quarter: 2008Q1

REPORT INFORMATION
  Report Type: 
  Country: None (occurrence: None)
  Receive Date: 20080214
  Receipt Date: 20080214
  Transmission Date: 20080703
  Serious: Yes (Hospitalization)
  Sender: FDA-Public Use
  Company Number: None

PATIENT
  Sex: Female
  Weight: 77.1115 kg

DRUGS (1)
  1. HEPARIN [Suspect]
     Indication: THROMBOSIS PROPHYLAXIS
     Dosage: HEPARIN (1ML 5000) Q8HR SQ (9 DOSES)
     Route: 058
     Dates: start: 20080125, end: 20080128

REACTIONS (5)
  - BLISTER [None]
  - INJECTION SITE BRUISING [None]
  - INJECTION SITE HAEMATOMA [None]
  - RASH ERYTHEMATOUS [None]
  - SKIN LESION [None]
